FAERS Safety Report 14706618 (Version 5)
Quarter: 2018Q2

REPORT INFORMATION
  Report Type: Spontaneous
  Country: BE (occurrence: BE)
  Receive Date: 20180402
  Receipt Date: 20180413
  Transmission Date: 20180711
  Serious: Yes (Life-Threatening, Hospitalization, Other)
  Sender: FDA-Public Use
  Company Number: BE-009507513-1802BEL008048

PATIENT
  Age: 36 Year
  Sex: Female
  Weight: 70 kg

DRUGS (11)
  1. ROCURONIUM BROMIDE. [Suspect]
     Active Substance: ROCURONIUM BROMIDE
     Dosage: 40 MG,  IN TOTAL
     Route: 042
  2. PLASMA LYTE (ELECTROLYTES (UNSPECIFIED)) [Suspect]
     Active Substance: ELECTROLYTES NOS
     Indication: INDUCTION OF ANAESTHESIA
     Dosage: 1 DF,  SINGLE
     Route: 042
  3. PROPOLIPID [Suspect]
     Active Substance: PROPOFOL
     Dosage: IN TOTAL
     Route: 042
  4. VOLTAREN [Suspect]
     Active Substance: DICLOFENAC SODIUM
     Indication: INDUCTION OF ANAESTHESIA
     Dosage: 75 MG, SINGLE
     Route: 042
  5. SUFENTA [Suspect]
     Active Substance: SUFENTANIL CITRATE
     Indication: INDUCTION OF ANAESTHESIA
     Dosage: 10 MICROGRAM, SINGLE
     Route: 042
  6. ROCURONIUM BROMIDE. [Suspect]
     Active Substance: ROCURONIUM BROMIDE
     Indication: INDUCTION OF ANAESTHESIA
     Dosage: 40 MG, SINGLE
     Route: 042
  7. PROPOLIPID [Suspect]
     Active Substance: PROPOFOL
     Indication: INDUCTION OF ANAESTHESIA
     Dosage: 200 MG, SINGLE
     Route: 042
  8. VOLTAREN [Suspect]
     Active Substance: DICLOFENAC SODIUM
     Dosage: IN TOTAL
     Route: 042
  9. DEXAMETHASONE. [Suspect]
     Active Substance: DEXAMETHASONE
     Indication: INDUCTION OF ANAESTHESIA
     Dosage: 5 MG, SINGLE
     Route: 042
  10. SUFENTA [Suspect]
     Active Substance: SUFENTANIL CITRATE
     Dosage: 10 MICROGRAMMES ; IN TOTAL
     Route: 042
  11. DROPERIDOL. [Suspect]
     Active Substance: DROPERIDOL
     Indication: INDUCTION OF ANAESTHESIA
     Dosage: 1.25 MG, SINGLE
     Route: 042

REACTIONS (2)
  - Off label use [Unknown]
  - Anaphylactic shock [Recovered/Resolved]

NARRATIVE: CASE EVENT DATE: 20180115
